FAERS Safety Report 9516205 (Version 1)
Quarter: 2013Q3

REPORT INFORMATION
  Report Type: Spontaneous
  Country: GB (occurrence: None)
  Receive Date: 20130826
  Receipt Date: 20130826
  Transmission Date: 20140515
  Serious: Yes (Death, Hospitalization)
  Sender: FDA-Public Use
  Company Number: 150481

PATIENT
  Age: 63 Year
  Sex: Female

DRUGS (2)
  1. CARBOPLATIN [Suspect]
     Indication: OVARIAN CANCER
     Dosage: 3 WEEKLY ( AUC5 )
  2. PACLITAXEL [Suspect]
     Indication: OVARIAN CANCER

REACTIONS (9)
  - Tumour lysis syndrome [None]
  - Multi-organ failure [None]
  - Hyperkalaemia [None]
  - Hypocalcaemia [None]
  - Hyperphosphataemia [None]
  - Metabolic acidosis [None]
  - Renal failure acute [None]
  - Pulmonary oedema [None]
  - General physical health deterioration [None]
